FAERS Safety Report 19585486 (Version 1)
Quarter: 2021Q3

REPORT INFORMATION
  Report Type: Spontaneous
  Country: US (occurrence: US)
  Receive Date: 20210721
  Receipt Date: 20210721
  Transmission Date: 20211014
  Serious: No
  Sender: FDA-Public Use
  Company Number: US-ORGANON-O2107USA000065

PATIENT
  Age: 19 Year
  Sex: Female
  Weight: 74.3 kg

DRUGS (1)
  1. NEXPLANON [Suspect]
     Active Substance: ETONOGESTREL
     Dosage: 1 DOSAGE FORM (68MG), EVERY 3 YEARS
     Route: 059
     Dates: start: 20180308

REACTIONS (4)
  - Complication associated with device [Recovered/Resolved]
  - Pain [Unknown]
  - Device breakage [Not Recovered/Not Resolved]
  - Incorrect product administration duration [Unknown]

NARRATIVE: CASE EVENT DATE: 20210308
